FAERS Safety Report 9840758 (Version 1)
Quarter: 2013Q4

REPORT INFORMATION
  Report Type: Spontaneous
  Country: US (occurrence: None)
  Receive Date: 20131223
  Receipt Date: 20131223
  Transmission Date: 20140711
  Serious: No
  Sender: FDA-Public Use
  Company Number: 221116LEO

PATIENT
  Age: 58 Year
  Sex: Female

DRUGS (7)
  1. PICATO [Suspect]
     Indication: HEAVY EXPOSURE TO ULTRAVIOLET LIGHT
     Route: 061
     Dates: start: 20130319, end: 20130321
  2. LOSARTAN POTASSIUM (LOSARTAN POTASSIUM) [Concomitant]
  3. FLUOXETINE HCL(FLUOXETINE HYDROCHLORIDE) [Concomitant]
  4. VITAMIN D (VITAMIN D NOS) [Concomitant]
  5. PIRLOSEC (OTC) (OMEPRAZOLE) [Concomitant]
  6. ASA (ACETYLSALICYLIC ACID) [Concomitant]
  7. BAYER PM (BAYER PM) [Concomitant]

REACTIONS (1)
  - Skin discolouration [None]
